FAERS Safety Report 23269872 (Version 1)
Quarter: 2023Q4

REPORT INFORMATION
  Report Type: Spontaneous
  Country: CA (occurrence: CA)
  Receive Date: 20231207
  Receipt Date: 20231207
  Transmission Date: 20240110
  Serious: Yes (Hospitalization, Other)
  Sender: FDA-Public Use
  Company Number: CA-CELLTRION INC.-2022CA021757

PATIENT

DRUGS (13)
  1. INFLECTRA [Suspect]
     Active Substance: INFLIXIMAB-DYYB
     Indication: Crohn^s disease
     Dosage: 10 MG/KG, WEEK 0 - HOSPITAL START
     Route: 042
     Dates: start: 20221214, end: 20221214
  2. INFLECTRA [Suspect]
     Active Substance: INFLIXIMAB-DYYB
     Dosage: 10 MG/KG, WEEK 2,6 THEN Q 6 WEEKS
     Route: 042
     Dates: start: 20221229
  3. INFLECTRA [Suspect]
     Active Substance: INFLIXIMAB-DYYB
     Dosage: 490MG (10MG/KG), INDUCTION WEEK 6
     Route: 042
     Dates: start: 20230126
  4. INFLECTRA [Suspect]
     Active Substance: INFLIXIMAB-DYYB
     Dosage: 510 MG, (10MG/KG), INDUCTION WEEK 6
     Route: 042
     Dates: start: 20230309
  5. INFLECTRA [Suspect]
     Active Substance: INFLIXIMAB-DYYB
     Dosage: 10 MG/KG, WEEK 2,6 THEN Q 6 WEEKS
     Route: 042
     Dates: start: 20230420
  6. INFLECTRA [Suspect]
     Active Substance: INFLIXIMAB-DYYB
     Dosage: 10 MG/KG, WEEK 2,6 THEN Q 6 WEEKS
     Route: 042
     Dates: start: 20230420
  7. INFLECTRA [Suspect]
     Active Substance: INFLIXIMAB-DYYB
     Dosage: 500 MG, AFTER 7 WEEKS AND 6 DAYS
     Route: 042
     Dates: start: 20230614
  8. INFLECTRA [Suspect]
     Active Substance: INFLIXIMAB-DYYB
     Dosage: 10 MG/KG, WEEK 2,6 THEN Q 6 WEEKS
     Route: 042
     Dates: start: 20230726
  9. INFLECTRA [Suspect]
     Active Substance: INFLIXIMAB-DYYB
     Dosage: 10 MG/KG, WEEK 2,6 THEN Q 6 WEEKS
     Route: 042
     Dates: start: 20230906
  10. INFLECTRA [Suspect]
     Active Substance: INFLIXIMAB-DYYB
     Dosage: 10 MG/KG, WEEK 2,6 THEN Q 6 WEEKS
     Route: 042
     Dates: start: 20231018
  11. INFLECTRA [Suspect]
     Active Substance: INFLIXIMAB-DYYB
     Dosage: 10 MG/KG, WEEK 2,6 THEN Q 6 WEEKS (520MG, 6 WEEKS)
     Route: 042
     Dates: start: 20231129
  12. SOLU-CORTEF [Concomitant]
     Active Substance: HYDROCORTISONE SODIUM SUCCINATE
     Dosage: 100 MG
     Route: 042
  13. HYDROCORTISONE [Concomitant]
     Active Substance: HYDROCORTISONE
     Dosage: UNK
     Dates: start: 20231129, end: 20231129

REACTIONS (10)
  - Pain in extremity [Recovered/Resolved]
  - Peripheral swelling [Recovering/Resolving]
  - Pain in jaw [Unknown]
  - COVID-19 [Recovered/Resolved]
  - Myalgia [Not Recovered/Not Resolved]
  - Hypoaesthesia [Recovering/Resolving]
  - Hypokinesia [Unknown]
  - Inflammation [Unknown]
  - Off label use [Unknown]
  - Off label use [Unknown]

NARRATIVE: CASE EVENT DATE: 20221214
